FAERS Safety Report 17267421 (Version 2)
Quarter: 2020Q2

REPORT INFORMATION
  Report Type: Spontaneous
  Country: US (occurrence: US)
  Receive Date: 20200114
  Receipt Date: 20200402
  Transmission Date: 20200713
  Serious: No
  Sender: FDA-Public Use
  Company Number: US-SA-2020SA008888

PATIENT
  Age: 54 Year
  Sex: Female
  Weight: 96.6 kg

DRUGS (1)
  1. KEVZARA [Suspect]
     Active Substance: SARILUMAB
     Indication: RHEUMATOID ARTHRITIS
     Dosage: 200 MG, QOW
     Route: 058
     Dates: start: 20191112

REACTIONS (4)
  - Muscular weakness [Unknown]
  - Respiratory disorder [Unknown]
  - Injection site reaction [Unknown]
  - Asthma [Unknown]
